FAERS Safety Report 8777058 (Version 3)
Quarter: 2013Q3

REPORT INFORMATION
  Report Type: Spontaneous
  Country: US (occurrence: US)
  Receive Date: 20120911
  Receipt Date: 20130712
  Transmission Date: 20140515
  Serious: Yes (Hospitalization, Other)
  Sender: FDA-Public Use
  Company Number: US-PFIZER INC-2012221208

PATIENT
  Age: 58 Year
  Sex: Female
  Weight: 77.1 kg

DRUGS (5)
  1. XANAX [Suspect]
     Indication: PANIC DISORDER WITH AGORAPHOBIA
     Dosage: 1 MG, AS NEEDED (SEVEN TO NINE TIMES A DAY)
     Route: 048
  2. ALPRAZOLAM [Suspect]
     Indication: PANIC DISORDER WITH AGORAPHOBIA
     Dosage: UNK
  3. MORPHINE SULFATE [Suspect]
     Dosage: UNK
     Dates: start: 201301, end: 201301
  4. SYNTHROID [Suspect]
     Indication: THYROID DISORDER
     Dosage: 112 UG, 1X/DAY
  5. BENICAR [Suspect]
     Indication: HYPERTENSION
     Dosage: 20 MG, 1X/DAY

REACTIONS (13)
  - Nervous system neoplasm [Unknown]
  - Schwannoma [Unknown]
  - Respiratory failure [Unknown]
  - Dyspnoea [Unknown]
  - Withdrawal syndrome [Unknown]
  - Grand mal convulsion [Unknown]
  - Somnolence [Unknown]
  - Psychomotor hyperactivity [Unknown]
  - Rash [Unknown]
  - Panic attack [Unknown]
  - Drug ineffective [Unknown]
  - Product quality issue [Unknown]
  - Poor quality drug administered [Unknown]
